FAERS Safety Report 5138040-X (Version None)
Quarter: 2006Q4

REPORT INFORMATION
  Report Type: 
  Country: None (occurrence: None)
  Receive Date: 20061030
  Receipt Date: 20060329
  Transmission Date: 20070319
  Serious: No
  Sender: FDA-Public Use
  Company Number: US-GLAXOSMITHKLINE-A0600665A

PATIENT
  Age: 55 Year
  Sex: Female

DRUGS (9)
  1. ADVAIR HFA [Suspect]
     Indication: ASTHMA
     Route: 055
     Dates: start: 20040130
  2. CELEBREX [Concomitant]
     Dosage: 200MG PER DAY
  3. EFFEXOR XR [Concomitant]
     Dosage: 150MG PER DAY
  4. WELLBUTRIN SR [Concomitant]
     Dosage: 150MG TWICE PER DAY
  5. REMERON [Concomitant]
     Dosage: 45MG PER DAY
  6. NEURONTIN [Concomitant]
  7. PROTONIX [Concomitant]
     Dosage: 40MG PER DAY
  8. XANAX [Concomitant]
     Dosage: .2MG PER DAY
  9. PREMARIN [Concomitant]
     Dosage: .625MG PER DAY

REACTIONS (4)
  - EATING DISORDER [None]
  - GLOSSODYNIA [None]
  - MOUTH ULCERATION [None]
  - ORAL PAIN [None]
